FAERS Safety Report 5114882-1 (Version None)
Quarter: 2006Q3

REPORT INFORMATION
  Report Type: 
  Country: None (occurrence: None)
  Receive Date: 20060922
  Receipt Date: 20060922
  Transmission Date: 20061208
  Serious: Yes (Life-Threatening)
  Sender: FDA-Public Use
  Company Number: None

PATIENT
  Age: 78 Year
  Sex: Male
  Weight: 73 kg

DRUGS (6)
  1. DOBUTAMINE HCL IN DEXTROSE 5% [Suspect]
     Indication: CARDIAC STRESS TEST
     Dosage: 19.2 MG IV
     Route: 042
     Dates: start: 20060727
  2. DOBUTAMINE HCL IN DEXTROSE 5% [Suspect]
     Indication: CHEST PAIN
     Dosage: 19.2 MG IV
     Route: 042
     Dates: start: 20060727
  3. NTG OINTMENT [Concomitant]
  4. POTASSIUM CHLORIDE [Concomitant]
  5. PANTOPRAZOLE SODIUM [Concomitant]
  6. METOPROLOL TARTRATE [Concomitant]

REACTIONS (2)
  - INFUSION RELATED REACTION [None]
  - VENTRICULAR TACHYCARDIA [None]
